FAERS Safety Report 5152033-8 (Version None)
Quarter: 2006Q4

REPORT INFORMATION
  Report Type: 
  Country: None (occurrence: None)
  Receive Date: 20061116
  Receipt Date: 20061101
  Transmission Date: 20070319
  Serious: Yes (Death)
  Sender: FDA-Public Use
  Company Number: US-BAYER-200616257BWH

PATIENT
  Age: 87 Year
  Sex: Male

DRUGS (4)
  1. TRASYLOL [Suspect]
     Indication: HEART VALVE OPERATION
     Dosage: UNIT DOSE: 2000000 KIU
     Dates: start: 20060101, end: 20060101
  2. TRASYLOL [Suspect]
     Dosage: UNIT DOSE: 2000000 KIU
     Dates: start: 20060101, end: 20060101
  3. PROTAMINE SULFATE [Suspect]
     Indication: HEART VALVE OPERATION
     Dates: start: 20060101
  4. HEPARIN [Concomitant]

REACTIONS (2)
  - CARDIAC ARREST [None]
  - HEART RATE DECREASED [None]
